FAERS Safety Report 24823603 (Version 1)
Quarter: 2025Q1

REPORT INFORMATION
  Report Type: Report from Study
  Country: CA (occurrence: CA)
  Receive Date: 20250109
  Receipt Date: 20250109
  Transmission Date: 20250408
  Serious: Yes (Hospitalization, Other)
  Sender: TAKEDA
  Company Number: CA-TAKEDA-2025TUS002658

PATIENT
  Sex: Male

DRUGS (2)
  1. VEDOLIZUMAB [Suspect]
     Active Substance: VEDOLIZUMAB
     Indication: Crohn^s disease
  2. STELARA [Concomitant]
     Active Substance: USTEKINUMAB
     Dosage: UNK UNK, Q6WEEKS
     Dates: start: 2020

REACTIONS (2)
  - Nephrolithiasis [Recovering/Resolving]
  - Fistula [Not Recovered/Not Resolved]
